FAERS Safety Report 14859366 (Version 1)
Quarter: 2018Q2

REPORT INFORMATION
  Report Type: Spontaneous
  Country: US (occurrence: US)
  Receive Date: 20180423
  Receipt Date: 20180423
  Transmission Date: 20180711
  Serious: No
  Sender: FDA-Public Use
  Company Number: None

PATIENT
  Age: 26 Year
  Sex: Female
  Weight: 78.47 kg

DRUGS (1)
  1. NEXPLANON [Suspect]
     Active Substance: ETONOGESTREL
     Indication: HYPERSENSITIVITY
     Dates: start: 20180327, end: 20180419

REACTIONS (4)
  - Device leakage [None]
  - Pain [None]
  - Scar [None]
  - Chemical burn [None]

NARRATIVE: CASE EVENT DATE: 20180419
